FAERS Safety Report 8380760-8 (Version None)
Quarter: 2012Q2

REPORT INFORMATION
  Report Type: 
  Country: None (occurrence: None)
  Receive Date: 20120523
  Receipt Date: 20111107
  Transmission Date: 20120825
  Serious: Yes (Life-Threatening, Hospitalization)
  Sender: FDA-Public Use
  Company Number: US-ROCHE-1012596

PATIENT
  Sex: Female

DRUGS (7)
  1. HERCEPTIN [Suspect]
     Route: 042
  2. DOXORUBICIN HCL [Suspect]
     Indication: BREAST CANCER
     Dosage: ON DAY 1 FOR 4 CYCLES
     Route: 042
     Dates: start: 20040423
  3. TAMOXIFEN CITRATE [Suspect]
     Indication: BREAST CANCER
     Dosage: FOR 5 YEARS
     Route: 048
     Dates: start: 20040423
  4. CYCLOPHOSPHAMIDE [Suspect]
     Indication: BREAST CANCER
     Dosage: OVER 30 MIN ON DAY 1 FOR 4 CYCLES
     Route: 042
     Dates: start: 20040423
  5. PACLITAXEL [Suspect]
     Indication: BREAST CANCER
     Dosage: OVER 1 HR ON DAY 1FOR 12 WEEKS
     Route: 042
     Dates: start: 20040423
  6. AROMATASE INHIBITOR NOS [Suspect]
     Indication: BREAST CANCER
     Route: 065
     Dates: start: 20040423
  7. HERCEPTIN [Suspect]
     Indication: BREAST CANCER
     Dosage: LOADING DOSE, OVER 90 MIN
     Route: 042
     Dates: start: 20040423

REACTIONS (1)
  - EMBOLISM [None]
